FAERS Safety Report 7073494-3 (Version None)
Quarter: 2010Q4

REPORT INFORMATION
  Report Type: 
  Country: None (occurrence: None)
  Receive Date: 20101029
  Receipt Date: 20100628
  Transmission Date: 20110411
  Serious: No
  Sender: FDA-Public Use
  Company Number: A0867415A

PATIENT
  Age: 43 Year
  Sex: Male

DRUGS (3)
  1. ADVAIR DISKUS 100/50 [Suspect]
     Indication: CHRONIC OBSTRUCTIVE PULMONARY DISEASE
     Dosage: 1PUFF TWICE PER DAY
     Route: 055
     Dates: start: 20050101
  2. RESCUE REMEDY [Concomitant]
     Route: 055
  3. UNSPECIFIED MEDICATION [Concomitant]
     Indication: BACK PAIN

REACTIONS (1)
  - OVERDOSE [None]
